FAERS Safety Report 19784545 (Version 1)
Quarter: 2021Q3

REPORT INFORMATION
  Report Type: Spontaneous
  Country: US (occurrence: US)
  Receive Date: 20210903
  Receipt Date: 20210903
  Transmission Date: 20211014
  Serious: Yes (Disabling, Other)
  Sender: FDA-Public Use
  Company Number: None

PATIENT
  Age: 73 Year
  Sex: Female
  Weight: 53.1 kg

DRUGS (1)
  1. PROLIA [Suspect]
     Active Substance: DENOSUMAB
     Indication: OSTEOPOROSIS
     Dosage: ?          OTHER FREQUENCY:6 MONTHS;OTHER ROUTE:HIP?

REACTIONS (3)
  - Therapy interrupted [None]
  - Alopecia [None]
  - Compression fracture [None]

NARRATIVE: CASE EVENT DATE: 20180422
